FAERS Safety Report 6805418-5 (Version None)
Quarter: 2010Q2

REPORT INFORMATION
  Report Type: 
  Country: None (occurrence: None)
  Receive Date: 20100628
  Receipt Date: 20071205
  Transmission Date: 20101027
  Serious: No
  Sender: FDA-Public Use
  Company Number: US-PFIZER INC-2007088358

PATIENT
  Sex: Male
  Weight: 53.98 kg

DRUGS (4)
  1. GEODON [Suspect]
     Indication: AFFECTIVE DISORDER
     Route: 048
     Dates: start: 20070704
  2. ADDERALL XR 10 [Interacting]
     Indication: ATTENTION DEFICIT/HYPERACTIVITY DISORDER
     Route: 048
     Dates: start: 20070906, end: 20070906
  3. PROZAC [Concomitant]
     Indication: ANXIETY
     Route: 048
     Dates: start: 20070723
  4. PROZAC [Concomitant]
     Indication: DEPRESSION

REACTIONS (3)
  - DEPRESSION [None]
  - DRUG INTERACTION [None]
  - TIC [None]
